FAERS Safety Report 9228688 (Version 1)
Quarter: 2013Q2

REPORT INFORMATION
  Report Type: Spontaneous
  Country: DE (occurrence: None)
  Receive Date: 20130411
  Receipt Date: 20130411
  Transmission Date: 20140414
  Serious: Yes (Other)
  Sender: FDA-Public Use
  Company Number: None

PATIENT
  Sex: 0

DRUGS (1)
  1. FROVATRIPTAN [Suspect]
     Indication: MIGRAINE
     Dosage: ORAL AND SUBCUTANEOUS ROUTE OF ADMINISTRATION WAS FOLLOWED ON NEED BASIS. NO FURTHER DETAILS ARE AVAILABLE REGARDING ROUTE OF ADMINISTRATION.

REACTIONS (1)
  - Depression [None]
